FAERS Safety Report 22210518 (Version 2)
Quarter: 2023Q2

REPORT INFORMATION
  Report Type: Spontaneous
  Country: US (occurrence: None)
  Receive Date: 20230414
  Receipt Date: 20230510
  Transmission Date: 20230721
  Serious: No
  Sender: FDA-Public Use
  Company Number: 2023A066877

PATIENT
  Age: 796 Month
  Sex: Male
  Weight: 122.5 kg

DRUGS (1)
  1. BYDUREON BCISE [Suspect]
     Active Substance: EXENATIDE
     Indication: Type 2 diabetes mellitus
     Dosage: BEGINNING YEARS AGO2MG/ML ONCE A WEEK
     Route: 058

REACTIONS (6)
  - Glycosylated haemoglobin increased [Unknown]
  - Hypertension [Unknown]
  - Hypoacusis [Unknown]
  - Excessive cerumen production [Unknown]
  - Needle issue [Unknown]
  - Device delivery system issue [Unknown]

NARRATIVE: CASE EVENT DATE: 20230301
